FAERS Safety Report 5757323-3 (Version None)
Quarter: 2008Q2

REPORT INFORMATION
  Report Type: 
  Country: None (occurrence: None)
  Receive Date: 20080603
  Receipt Date: 20080521
  Transmission Date: 20081010
  Serious: Yes (Hospitalization)
  Sender: FDA-Public Use
  Company Number: GB-WYE-G01568708

PATIENT
  Age: 44 Year
  Sex: Female

DRUGS (1)
  1. TAZOCIN [Suspect]
     Indication: ABSCESS
     Dosage: 4.5 G EVERY
     Dates: start: 20080501

REACTIONS (3)
  - CHEST PAIN [None]
  - INFUSION SITE PAIN [None]
  - LIMB DISCOMFORT [None]
